FAERS Safety Report 24832331 (Version 1)
Quarter: 2025Q1

REPORT INFORMATION
  Report Type: Spontaneous
  Country: CA (occurrence: CA)
  Receive Date: 20250110
  Receipt Date: 20250110
  Transmission Date: 20250409
  Serious: No
  Sender: ABBVIE
  Company Number: CA-ABBVIE-6074468

PATIENT
  Age: 25 Year
  Sex: Male

DRUGS (4)
  1. RINVOQ [Suspect]
     Active Substance: UPADACITINIB
     Indication: Colitis ulcerative
     Dosage: LAST ADMIN DATE - 2024?FOR 12 WEEKS
     Route: 048
     Dates: start: 202403
  2. RINVOQ [Suspect]
     Active Substance: UPADACITINIB
     Indication: Colitis ulcerative
     Route: 048
     Dates: start: 202406, end: 202412
  3. RINVOQ [Suspect]
     Active Substance: UPADACITINIB
     Indication: Colitis ulcerative
     Dosage: FOR 12 WEEKS
     Route: 048
     Dates: start: 202306, end: 202308
  4. RINVOQ [Suspect]
     Active Substance: UPADACITINIB
     Indication: Colitis ulcerative
     Dosage: FIRST ADMIN DATE 2023
     Route: 048
     Dates: end: 202310

REACTIONS (4)
  - Cholestatic liver injury [Unknown]
  - Blood bilirubin increased [Unknown]
  - Jaundice [Unknown]
  - Product residue present [Unknown]

NARRATIVE: CASE EVENT DATE: 20230101
